FAERS Safety Report 4423737-7 (Version None)
Quarter: 2004Q3

REPORT INFORMATION
  Report Type: 
  Country: None (occurrence: None)
  Receive Date: 20040811
  Receipt Date: 20040802
  Transmission Date: 20050211
  Serious: Yes (Other)
  Sender: FDA-Public Use
  Company Number: US-MERCK-0408USA00147

PATIENT
  Sex: Female

DRUGS (2)
  1. SYNTHROID [Concomitant]
     Route: 065
  2. VIOXX [Suspect]
     Route: 048
     Dates: start: 20040709, end: 20040701

REACTIONS (4)
  - DYSPHAGIA [None]
  - EYE SWELLING [None]
  - RASH [None]
  - SWELLING FACE [None]
